FAERS Safety Report 4834216-7 (Version None)
Quarter: 2005Q4

REPORT INFORMATION
  Report Type: 
  Country: None (occurrence: None)
  Receive Date: 20051122
  Receipt Date: 20051031
  Transmission Date: 20060501
  Serious: Yes (Life-Threatening)
  Sender: FDA-Public Use
  Company Number: 2005AP05623

PATIENT
  Age: 61 Year
  Sex: Male
  Weight: 72 kg

DRUGS (11)
  1. MEROPEN [Suspect]
     Indication: INFECTION
     Route: 041
     Dates: start: 20050709, end: 20050711
  2. MEROPEN [Suspect]
     Route: 041
     Dates: start: 20050713, end: 20050714
  3. VANCOMYCIN [Suspect]
     Indication: INFECTION
     Route: 041
     Dates: start: 20050610, end: 20050711
  4. MILRILA [Suspect]
     Indication: CARDIAC FAILURE
     Route: 042
     Dates: start: 20050623, end: 20050711
  5. DOBUTAMINE HCL [Concomitant]
     Indication: CARDIAC FAILURE
     Route: 041
     Dates: start: 20050610, end: 20050802
  6. SIGMART [Concomitant]
     Indication: CARDIAC FAILURE
     Route: 041
     Dates: start: 20050610, end: 20050622
  7. FESIN [Concomitant]
     Indication: ANAEMIA
     Route: 042
     Dates: start: 20050708, end: 20050711
  8. SOLDACTONE [Concomitant]
     Indication: CARDIAC FAILURE ACUTE
     Route: 042
     Dates: start: 20050610, end: 20050711
  9. ASPIRIN [Concomitant]
     Indication: ACUTE MYOCARDIAL INFARCTION
     Route: 048
     Dates: start: 20050610, end: 20050711
  10. TEICOPLANIN [Concomitant]
     Dates: start: 20050628
  11. NITROGLYCERIN [Concomitant]
     Indication: ANGINA PECTORIS

REACTIONS (22)
  - ATELECTASIS [None]
  - BRADYCARDIA [None]
  - CARDIAC FAILURE [None]
  - COLD SWEAT [None]
  - CORONARY ARTERY STENOSIS [None]
  - CRYPTOGENIC ORGANIZING PNEUMONIA [None]
  - DYSPNOEA [None]
  - EOSINOPHILIA [None]
  - HEPATOMEGALY [None]
  - HYDROTHORAX [None]
  - HYPOGLYCAEMIA [None]
  - MALAISE [None]
  - METABOLIC ACIDOSIS [None]
  - MYOCARDIAL INFARCTION [None]
  - ORGAN FAILURE [None]
  - PALLOR [None]
  - PNEUMONIA STAPHYLOCOCCAL [None]
  - PNEUMONITIS [None]
  - RENAL ABSCESS [None]
  - SEPTIC SHOCK [None]
  - SPLENOMEGALY [None]
  - THERAPY NON-RESPONDER [None]
